FAERS Safety Report 14249619 (Version 1)
Quarter: 2017Q4

REPORT INFORMATION
  Report Type: Spontaneous
  Country: US (occurrence: US)
  Receive Date: 20171205
  Receipt Date: 20171205
  Transmission Date: 20180321
  Serious: No
  Sender: FDA-Public Use
  Company Number: US-B.I. PHARMACEUTICALS,INC./RIDGEFIELD-2017-BI-063839

PATIENT
  Sex: Female

DRUGS (5)
  1. DUONEB [Concomitant]
     Active Substance: ALBUTEROL SULFATE\IPRATROPIUM BROMIDE
     Indication: DYSPNOEA
     Dosage: 2 TIMES A DAY;  FORMULATION: INHALATION SOLUTION;
     Route: 055
  2. HYDROXYCHLOROQUINE [Concomitant]
     Active Substance: HYDROXYCHLOROQUINE
     Indication: ARTHRITIS
     Dosage: UNKNOWN;
     Route: 048
  3. PRADAXA [Suspect]
     Active Substance: DABIGATRAN ETEXILATE MESYLATE
     Indication: CEREBROVASCULAR ACCIDENT
     Dosage: 2 CAPSULES PER DAY;  FORM STRENGTH: 150 MG; FORMULATION: CAPSULE? ADMINISTRATION CORRECT? YES ?ACTIO
     Route: 065
     Dates: start: 2016
  4. FUROSEMIDE. [Concomitant]
     Active Substance: FUROSEMIDE
     Indication: PRODUCT USED FOR UNKNOWN INDICATION
     Dosage: UNKNOWN;
     Route: 048
  5. PRADAXA [Suspect]
     Active Substance: DABIGATRAN ETEXILATE MESYLATE
     Indication: ATRIAL FIBRILLATION

REACTIONS (3)
  - Contusion [Unknown]
  - Dizziness [Unknown]
  - Dyspnoea [Unknown]

NARRATIVE: CASE EVENT DATE: 2016
